FAERS Safety Report 5511828-9 (Version None)
Quarter: 2007Q4

REPORT INFORMATION
  Report Type: 
  Country: None (occurrence: None)
  Receive Date: 20071109
  Receipt Date: 20071105
  Transmission Date: 20080405
  Serious: Yes (Life-Threatening, Hospitalization)
  Sender: FDA-Public Use
  Company Number: GB-BOEHRINGER INGELHEIM PHARMACEUTICALS, INC.-2007-DE-06591GD

PATIENT
  Age: 75 Year
  Sex: Male

DRUGS (12)
  1. TIOTROPIUM-BROMIDE [Suspect]
     Indication: CHRONIC OBSTRUCTIVE PULMONARY DISEASE
     Route: 055
     Dates: start: 20031119
  2. TIOTROPIUM-BROMIDE [Suspect]
     Route: 055
     Dates: start: 20040427, end: 20040518
  3. TIOTROPIUM-BROMIDE [Suspect]
     Route: 055
     Dates: start: 20040524, end: 20050111
  4. TIOTROPIUM-BROMIDE [Suspect]
     Route: 055
     Dates: start: 20050118, end: 20050125
  5. TIOTROPIUM-BROMIDE [Suspect]
     Route: 055
     Dates: start: 20050201
  6. FRUMIL [Suspect]
  7. PERINDOPRIL ERBUMINE [Suspect]
  8. VOLTAREN [Suspect]
  9. LASIX [Concomitant]
  10. MAXIPIME [Concomitant]
  11. PRESOLON [Concomitant]
  12. CORTICOSTERONE [Concomitant]

REACTIONS (8)
  - CHRONIC OBSTRUCTIVE PULMONARY DISEASE [None]
  - HYPERKALAEMIA [None]
  - HYPERTENSION [None]
  - HYPOVOLAEMIA [None]
  - OEDEMA PERIPHERAL [None]
  - PARALYSIS [None]
  - PYREXIA [None]
  - RENAL FAILURE ACUTE [None]
